FAERS Safety Report 25779126 (Version 1)
Quarter: 2025Q3

REPORT INFORMATION
  Report Type: Spontaneous
  Country: US (occurrence: None)
  Receive Date: 20250909
  Receipt Date: 20250909
  Transmission Date: 20251021
  Serious: Yes (Hospitalization)
  Sender: FDA-CTU
  Company Number: None

PATIENT
  Age: 52 Year
  Sex: Male
  Weight: 113 kg

DRUGS (1)
  1. PONATINIB [Suspect]
     Active Substance: PONATINIB
     Dates: end: 20250728

REACTIONS (9)
  - Soft tissue necrosis [None]
  - Toe amputation [None]
  - Foot amputation [None]
  - Skin culture positive [None]
  - Enterococcus test positive [None]
  - Staphylococcal infection [None]
  - Streptococcal infection [None]
  - Actinomyces test positive [None]
  - Necrotising fasciitis [None]

NARRATIVE: CASE EVENT DATE: 20250816
